FAERS Safety Report 23122926 (Version 2)
Quarter: 2025Q1

REPORT INFORMATION
  Report Type: Spontaneous
  Country: CN (occurrence: CN)
  Receive Date: 20231030
  Receipt Date: 20250122
  Transmission Date: 20250409
  Serious: Yes (Hospitalization)
  Sender: CHIESI
  Company Number: CN-CHIESI-2023CHF04975

PATIENT

DRUGS (1)
  1. CLEVIPREX [Suspect]
     Active Substance: CLEVIDIPINE
     Indication: Hypertensive emergency
     Dates: start: 20220324

REACTIONS (1)
  - Cerebral infarction [Recovering/Resolving]

NARRATIVE: CASE EVENT DATE: 20220326
